FAERS Safety Report 7512039-8 (Version None)
Quarter: 2011Q2

REPORT INFORMATION
  Report Type: 
  Country: None (occurrence: None)
  Receive Date: 20110531
  Receipt Date: 20110519
  Transmission Date: 20111010
  Serious: Yes (Other)
  Sender: FDA-Public Use
  Company Number: FR-JNJFOC-20110510811

PATIENT
  Sex: Male
  Weight: 78 kg

DRUGS (8)
  1. ABIRATERONE ACETATE [Suspect]
     Route: 048
  2. CRESTOR [Concomitant]
     Indication: ANGINA PECTORIS
     Route: 048
     Dates: start: 20030101
  3. ASPIRIN [Concomitant]
     Indication: ANGINA PECTORIS
     Route: 048
     Dates: start: 20030101
  4. LOSARTAN POTASSIUM [Concomitant]
     Indication: ANGINA PECTORIS
     Route: 048
     Dates: start: 20030101
  5. PREDNISOLONE [Suspect]
     Indication: PROSTATE CANCER METASTATIC
     Route: 065
  6. PANTOPRAZOLE [Concomitant]
     Indication: PRODUCT USED FOR UNKNOWN INDICATION
     Route: 048
     Dates: start: 20030101
  7. ABIRATERONE ACETATE [Suspect]
     Indication: PROSTATE CANCER METASTATIC
     Route: 048
     Dates: start: 20110315, end: 20110515
  8. CELIPROLOL [Concomitant]
     Indication: ANGINA PECTORIS
     Dosage: 0.5 TABLET
     Route: 048
     Dates: start: 20030101

REACTIONS (1)
  - CYTOLYTIC HEPATITIS [None]
